FAERS Safety Report 8484589-1 (Version None)
Quarter: 2012Q3

REPORT INFORMATION
  Report Type: 
  Country: None (occurrence: None)
  Receive Date: 20120703
  Receipt Date: 20120323
  Transmission Date: 20120928
  Serious: No
  Sender: FDA-Public Use
  Company Number: US-TEVA-329914USA

PATIENT
  Sex: Female
  Weight: 127.12 kg

DRUGS (11)
  1. NUVIGIL [Suspect]
     Indication: NARCOLEPSY
     Dosage: EVERY AM
     Route: 048
     Dates: start: 20120322
  2. ESOMEPRAZOLE MAGNESIUM [Concomitant]
  3. ROSUVASTATIN [Concomitant]
  4. INSULIN ASPART [Concomitant]
     Indication: DIABETES MELLITUS
     Dosage: SLIDING SCALE
  5. FELODIPINE [Concomitant]
  6. DULOXETINE HYDROCHLORIDE [Concomitant]
  7. FUROSEMIDE [Concomitant]
  8. LEVOTHYROXINE SODIUM [Concomitant]
  9. INSULIN GLARGINE [Concomitant]
     Indication: DIABETES MELLITUS
     Dosage: 35 UNITS Q PM
  10. TRAZODONE HCL [Concomitant]
  11. PROPRANOLOL [Concomitant]

REACTIONS (1)
  - BLOOD GLUCOSE DECREASED [None]
